FAERS Safety Report 4569719-6 (Version None)
Quarter: 2005Q1

REPORT INFORMATION
  Report Type: 
  Country: None (occurrence: None)
  Receive Date: 20050201
  Receipt Date: 20050121
  Transmission Date: 20050727
  Serious: Yes (Hospitalization, Other)
  Sender: FDA-Public Use
  Company Number: GB-SHR-03-007935

PATIENT
  Age: 42 Year
  Sex: Female

DRUGS (2)
  1. MIRENA [Suspect]
     Indication: MENORRHAGIA
     Dosage: 20UG, CONT, INTRA-UTERINE
     Route: 015
     Dates: start: 20030425, end: 20030522
  2. SEROXAT ^NOVO NORDISK^ (PAROXETINE HYDROCHLORIDE) [Concomitant]

REACTIONS (6)
  - DEVICE FAILURE [None]
  - IUD MIGRATION [None]
  - PELVIC INFECTION [None]
  - PROCEDURAL COMPLICATION [None]
  - RECTAL PERFORATION [None]
  - UTERINE PERFORATION [None]
